FAERS Safety Report 15686188 (Version 1)
Quarter: 2018Q4

REPORT INFORMATION
  Report Type: Spontaneous
  Country: US (occurrence: US)
  Receive Date: 20181204
  Receipt Date: 20181204
  Transmission Date: 20190205
  Serious: Yes (Death, Hospitalization)
  Sender: FDA-Public Use
  Company Number: US-AMNEAL PHARMACEUTICALS-2018AMN00849

PATIENT
  Age: 68 Year
  Sex: Male
  Weight: 99.68 kg

DRUGS (10)
  1. AREDSAN [Concomitant]
     Indication: MACULAR DEGENERATION
     Dosage: UNK
     Dates: start: 2017
  2. LACTULOSE. [Concomitant]
     Active Substance: LACTULOSE
     Indication: HYPERAMMONAEMIA
     Dosage: UNK
     Dates: start: 20181106
  3. ONDASETRON [Concomitant]
     Active Substance: ONDANSETRON
     Indication: NAUSEA
     Dosage: UNK
     Dates: start: 20181018
  4. PREDNISON [Concomitant]
     Active Substance: PREDNISONE
     Indication: PROSTATE CANCER
     Dosage: UNK
     Dates: start: 20180614
  5. OXYCODONE HYDROCHLORIDE. [Suspect]
     Active Substance: OXYCODONE HYDROCHLORIDE
     Indication: PAIN
     Dosage: UNK
     Route: 065
     Dates: start: 20181019
  6. SYNTHROID [Concomitant]
     Active Substance: LEVOTHYROXINE SODIUM
     Indication: HYPOTHYROIDISM
     Dosage: UNK
     Dates: start: 20180616
  7. ASPIRIN. [Concomitant]
     Active Substance: ASPIRIN
     Indication: SUPPLEMENTATION THERAPY
     Dosage: UNK
     Dates: start: 2015
  8. TAMOXIFEN [Concomitant]
     Active Substance: TAMOXIFEN
     Indication: PROSTATE CANCER
     Dosage: UNK
     Dates: start: 201206
  9. MIRALAX [Concomitant]
     Active Substance: POLYETHYLENE GLYCOL 3350
     Indication: CONSTIPATION
     Dosage: UNK
     Dates: start: 2016
  10. MEGESTROL ACETATE. [Concomitant]
     Active Substance: MEGESTROL ACETATE
     Indication: DECREASED APPETITE
     Dosage: UNK
     Dates: start: 20181026

REACTIONS (9)
  - Sepsis [Fatal]
  - Respiratory failure [Unknown]
  - Coagulopathy [Unknown]
  - Acute kidney injury [Unknown]
  - Cholelithiasis [Not Recovered/Not Resolved]
  - Blood bilirubin increased [Unknown]
  - Hernia [Unknown]
  - Hepatic steatosis [Unknown]
  - Atrial fibrillation [Unknown]

NARRATIVE: CASE EVENT DATE: 20181016
